FAERS Safety Report 13476531 (Version 6)
Quarter: 2017Q2

REPORT INFORMATION
  Report Type: Report from Study
  Country: US (occurrence: US)
  Receive Date: 20170425
  Receipt Date: 20170626
  Transmission Date: 20170830
  Serious: Yes (Death, Hospitalization, Other)
  Sender: FDA-Public Use
  Company Number: US-PFIZER INC-2017014201

PATIENT
  Age: 39 Year
  Sex: Female

DRUGS (6)
  1. IBRANCE [Suspect]
     Active Substance: PALBOCICLIB
     Dosage: 125 MG, CYCLIC (3 WKS ON 1 WK OFF) (1 DAILY X 3 WKS OF 125)
     Route: 048
     Dates: start: 201701, end: 20170408
  2. FASLODEX [Suspect]
     Active Substance: FULVESTRANT
     Indication: BREAST CANCER METASTATIC
     Dosage: 500 MG, (EVERY 28 DAYS)
     Route: 030
     Dates: start: 20161201
  3. IBRANCE [Suspect]
     Active Substance: PALBOCICLIB
     Dosage: 125 MG, CYCLIC (DAILY FOR DAY 1 - DAY 21 FOLLOWED BY 7 DAYS OFF)  )
     Route: 048
     Dates: start: 20170105
  4. IBRANCE [Suspect]
     Active Substance: PALBOCICLIB
     Indication: BREAST CANCER METASTATIC
     Dosage: 125 MG, CYCLIC (1 DAILY 21 DAYS ON 7 DAYS OFF)
     Route: 048
     Dates: start: 201612
  5. IBRANCE [Suspect]
     Active Substance: PALBOCICLIB
     Dosage: 125 MG, CYCLIC (1 DAILY 3 WKS ON 1 WK OFF)
     Route: 048
     Dates: start: 201701, end: 201704
  6. FASLODEX [Suspect]
     Active Substance: FULVESTRANT
     Dosage: 500 MG, MONTHLY (QMO)
     Dates: end: 201704

REACTIONS (19)
  - Renal failure [Fatal]
  - Pyrexia [Fatal]
  - Deep vein thrombosis [Fatal]
  - Fatigue [Unknown]
  - Decreased appetite [Unknown]
  - Hyperglycaemia [Not Recovered/Not Resolved]
  - Alopecia [Not Recovered/Not Resolved]
  - Pneumonia [Fatal]
  - Diarrhoea [Unknown]
  - Joint swelling [Unknown]
  - Hypoxia [Fatal]
  - Pain [Recovering/Resolving]
  - Leukopenia [Not Recovered/Not Resolved]
  - Herpes zoster [Unknown]
  - Respiratory failure [Fatal]
  - Pancytopenia [Fatal]
  - Hyponatraemia [Fatal]
  - Dyspnoea [Unknown]
  - Peripheral swelling [Unknown]

NARRATIVE: CASE EVENT DATE: 20170205
